FAERS Safety Report 4496510-1 (Version None)
Quarter: 2004Q4

REPORT INFORMATION
  Report Type: 
  Country: None (occurrence: None)
  Receive Date: 20041103
  Receipt Date: 20041021
  Transmission Date: 20050328
  Serious: Yes (Other)
  Sender: FDA-Public Use
  Company Number: 601560

PATIENT
  Age: 1 Year
  Sex: Male
  Weight: 13 kg

DRUGS (3)
  1. ADVATE [Suspect]
     Indication: HAEMORRHAGE
     Dosage: 325 IU;PRN;INTRAVENOUS
     Route: 042
     Dates: start: 20040305
  2. ADVATE [Suspect]
  3. ADVATE [Suspect]

REACTIONS (5)
  - COAGULATION FACTOR INHIBITOR ASSAY [None]
  - COAGULATION FACTOR VII LEVEL DECREASED [None]
  - COAGULATION FACTOR VIII LEVEL DECREASED [None]
  - FEELING ABNORMAL [None]
  - WHITE BLOOD CELL COUNT INCREASED [None]
